FAERS Safety Report 11509974 (Version 2)
Quarter: 2015Q4

REPORT INFORMATION
  Report Type: Spontaneous
  Country: US (occurrence: US)
  Receive Date: 20150915
  Receipt Date: 20151013
  Transmission Date: 20160304
  Serious: No
  Sender: FDA-Public Use
  Company Number: US-JNJFOC-20150813054

PATIENT
  Age: 61 Year
  Sex: Female

DRUGS (2)
  1. MENS ROGAINE EXTRA STRENGTH [Suspect]
     Active Substance: MINOXIDIL
     Route: 061
  2. MENS ROGAINE EXTRA STRENGTH [Suspect]
     Active Substance: MINOXIDIL
     Indication: ALOPECIA
     Dosage: A LITTLE MORE HALF CAPFUL --3/4 CAPFUL, BETWEEN ONCE AND TWICE A DAY
     Route: 061

REACTIONS (3)
  - Wrong patient received medication [Unknown]
  - Product quality issue [Unknown]
  - Hair texture abnormal [Unknown]
